FAERS Safety Report 12853648 (Version 1)
Quarter: 2016Q4

REPORT INFORMATION
  Report Type: Spontaneous
  Country: US (occurrence: US)
  Receive Date: 20161017
  Receipt Date: 20161017
  Transmission Date: 20170207
  Serious: No
  Sender: FDA-Public Use
  Company Number: US-ASTRAZENECA-2016SF06114

PATIENT
  Sex: Female

DRUGS (16)
  1. FASLODEX [Suspect]
     Active Substance: FULVESTRANT
     Route: 030
  2. CITRACAL [Concomitant]
     Active Substance: CALCIUM CITRATE
  3. FISH OIL [Concomitant]
     Active Substance: FISH OIL
  4. FLANOSE [Concomitant]
  5. ATENOLOL. [Suspect]
     Active Substance: ATENOLOL
     Route: 048
  6. DURAGESIC [Concomitant]
     Active Substance: FENTANYL
  7. VILBERRY [Concomitant]
  8. GLUCOPHAGE [Concomitant]
     Active Substance: METFORMIN HYDROCHLORIDE
  9. ACETAMINOPHEN. [Concomitant]
     Active Substance: ACETAMINOPHEN
  10. BIOTIN [Concomitant]
     Active Substance: BIOTIN
  11. COENZYME Q10 [Concomitant]
     Active Substance: UBIDECARENONE
  12. AROMASIN [Suspect]
     Active Substance: EXEMESTANE
     Route: 048
  13. ALPHA LIPOIC ACID [Concomitant]
     Active Substance: .ALPHA.-LIPOIC ACID
  14. FLAXSEED [Concomitant]
     Active Substance: FLAX SEED
  15. CRANBERRY EXTRACT [Concomitant]
     Active Substance: CRANBERRY JUICE
  16. CLARITIN [Concomitant]
     Active Substance: LORATADINE

REACTIONS (9)
  - Arteriosclerosis [Unknown]
  - Pain [Unknown]
  - Pancreatic atrophy [Unknown]
  - Lumbar spinal stenosis [Unknown]
  - Calcification metastatic [Unknown]
  - Uterine leiomyoma [Unknown]
  - Cholelithiasis [Unknown]
  - Hypersensitivity [Unknown]
  - Abdominal hernia [Unknown]
